FAERS Safety Report 9477868 (Version 2)
Quarter: 2013Q3

REPORT INFORMATION
  Report Type: Spontaneous
  Country: US (occurrence: US)
  Receive Date: 20130827
  Receipt Date: 20130905
  Transmission Date: 20140515
  Serious: Yes (Hospitalization, Other)
  Sender: FDA-Public Use
  Company Number: US-BAXTER-2013BAX033416

PATIENT
  Age: 86 Year
  Sex: Male

DRUGS (1)
  1. DIANEAL LOW CALCIUM (ULTRABAG) [Suspect]
     Indication: PERITONEAL DIALYSIS
     Route: 033

REACTIONS (5)
  - Urinary tract infection [Recovering/Resolving]
  - Sepsis [Unknown]
  - Benign prostatic hyperplasia [Unknown]
  - Anaemia [Unknown]
  - Hypokalaemia [Unknown]
